FAERS Safety Report 5798387-0 (Version None)
Quarter: 2008Q3

REPORT INFORMATION
  Report Type: 
  Country: None (occurrence: None)
  Receive Date: 20080702
  Receipt Date: 20080629
  Transmission Date: 20090109
  Serious: Yes (Death)
  Sender: FDA-Public Use
  Company Number: EG-AVENTIS-200816173GDDC

PATIENT
  Age: 63 Year
  Sex: Male

DRUGS (2)
  1. LANTUS [Suspect]
     Indication: TYPE 2 DIABETES MELLITUS
     Route: 058
     Dates: start: 20080501, end: 20080622
  2. ORAL ANTIDIABETICS [Concomitant]

REACTIONS (1)
  - DEATH [None]
